FAERS Safety Report 23742319 (Version 4)
Quarter: 2024Q3

REPORT INFORMATION
  Report Type: Report from Study
  Country: US (occurrence: US)
  Receive Date: 20240415
  Receipt Date: 20240712
  Transmission Date: 20241017
  Serious: Yes (Life-Threatening, Hospitalization, Other)
  Sender: GLAXOSMITHKLINE
  Company Number: US-GLAXOSMITHKLINE-US2024AMR047537

PATIENT

DRUGS (3)
  1. NIRAPARIB [Suspect]
     Active Substance: NIRAPARIB
     Indication: Malignant peritoneal neoplasm
     Dosage: 300 MG, QD
     Dates: start: 20240322, end: 20240408
  2. NIRAPARIB [Suspect]
     Active Substance: NIRAPARIB
     Indication: Peritoneal sarcoma
     Dosage: 1 DF, QD
     Route: 048
  3. GRANIX [Concomitant]
     Active Substance: TBO-FILGRASTIM
     Indication: Product used for unknown indication
     Dosage: UNK

REACTIONS (32)
  - Near death experience [Unknown]
  - Cerebral haemorrhage [Unknown]
  - Asthenia [Not Recovered/Not Resolved]
  - Hospitalisation [Unknown]
  - Haematochezia [Unknown]
  - Loss of consciousness [Unknown]
  - Platelet count decreased [Not Recovered/Not Resolved]
  - Stoma site haemorrhage [Not Recovered/Not Resolved]
  - Fatigue [Not Recovered/Not Resolved]
  - Headache [Unknown]
  - Sunburn [Unknown]
  - Oral mucosal blistering [Unknown]
  - Vomiting [Recovering/Resolving]
  - Nausea [Recovering/Resolving]
  - Anxiety [Unknown]
  - Tremor [Not Recovered/Not Resolved]
  - Haemorrhage [Unknown]
  - Skin laceration [Unknown]
  - Red blood cell count decreased [Not Recovered/Not Resolved]
  - White blood cell count decreased [Not Recovered/Not Resolved]
  - Injury associated with device [Unknown]
  - Condition aggravated [Unknown]
  - Contusion [Unknown]
  - Skin discolouration [Unknown]
  - Capillary disorder [Unknown]
  - Haemoglobin decreased [Unknown]
  - Swelling [Not Recovered/Not Resolved]
  - Paranasal sinus discomfort [Not Recovered/Not Resolved]
  - Dry mouth [Not Recovered/Not Resolved]
  - Hypotension [Unknown]
  - Fall [Not Recovered/Not Resolved]
  - Product dose omission issue [Unknown]

NARRATIVE: CASE EVENT DATE: 20240326
